FAERS Safety Report 4892893-9 (Version None)
Quarter: 2005Q4

REPORT INFORMATION
  Report Type: 
  Country: None (occurrence: None)
  Receive Date: 20051220
  Receipt Date: 20050906
  Transmission Date: 20060501
  Serious: Yes (Other)
  Sender: FDA-Public Use
  Company Number: 417457

PATIENT
  Age: 61 Year
  Sex: Female

DRUGS (5)
  1. BONIVA [Suspect]
     Indication: OSTEOPOROSIS
     Dosage: ORAL
     Route: 048
     Dates: start: 20050801
  2. VITAMIN SUPPLEMENT (VITAMIN NOS) [Concomitant]
  3. ADVIL [Concomitant]
  4. UNSPECIFIED DRUG (GENERIC UNKNOWN) [Concomitant]
  5. COLD MEDICATION NOS (COLD MEDICATION NOS) [Concomitant]

REACTIONS (2)
  - DIZZINESS [None]
  - HYPERHIDROSIS [None]
